FAERS Safety Report 23361872 (Version 1)
Quarter: 2024Q1

REPORT INFORMATION
  Report Type: Spontaneous
  Country: US (occurrence: US)
  Receive Date: 20240103
  Receipt Date: 20240103
  Transmission Date: 20240410
  Serious: No
  Sender: FDA-Public Use
  Company Number: US-PFIZER INC-202300452958

PATIENT
  Age: 53 Year
  Sex: Female

DRUGS (9)
  1. IBRANCE [Suspect]
     Active Substance: PALBOCICLIB
     Dosage: ONCE DAILY FOR 21 DAYS, FOLLOWED BY 7 DAYS OFF, REPEAT EVERY 28 DAYS
     Route: 048
     Dates: start: 202009
  2. DULOXETINE [Concomitant]
     Active Substance: DULOXETINE
  3. ADDERALL [Concomitant]
     Active Substance: AMPHETAMINE ASPARTATE\AMPHETAMINE SULFATE\DEXTROAMPHETAMINE SACCHARATE\DEXTROAMPHETAMINE SULFATE
  4. ROPINIROLE [Concomitant]
     Active Substance: ROPINIROLE
  5. ANASTROZOLE [Concomitant]
     Active Substance: ANASTROZOLE
  6. LEVOTHYROXINE [Concomitant]
     Active Substance: LEVOTHYROXINE
  7. BUSPIRONE [Concomitant]
     Active Substance: BUSPIRONE HYDROCHLORIDE
  8. ZOMETA [Concomitant]
     Active Substance: ZOLEDRONIC ACID
  9. GOSERELIN [Concomitant]
     Active Substance: GOSERELIN

REACTIONS (2)
  - Chills [Not Recovered/Not Resolved]
  - Sleep disorder [Not Recovered/Not Resolved]

NARRATIVE: CASE EVENT DATE: 20231201
